FAERS Safety Report 6705123-X (Version None)
Quarter: 2010Q2

REPORT INFORMATION
  Report Type: 
  Country: None (occurrence: None)
  Receive Date: 20100430
  Receipt Date: 20100120
  Transmission Date: 20101027
  Serious: No
  Sender: FDA-Public Use
  Company Number: US-ASTRAZENECA-2010SE02573

PATIENT
  Age: 63 Year
  Sex: Female
  Weight: 95.3 kg

DRUGS (3)
  1. NEXIUM [Suspect]
     Indication: GASTROOESOPHAGEAL REFLUX DISEASE
     Route: 048
     Dates: start: 20080101
  2. LEXAPRO [Concomitant]
  3. VITAMIN B-12 [Concomitant]

REACTIONS (2)
  - DRUG DOSE OMISSION [None]
  - DYSPEPSIA [None]
